FAERS Safety Report 14100402 (Version 1)
Quarter: 2017Q4

REPORT INFORMATION
  Report Type: Spontaneous
  Country: US (occurrence: US)
  Receive Date: 20171017
  Receipt Date: 20171017
  Transmission Date: 20180321
  Serious: No
  Sender: FDA-Public Use
  Company Number: US-ACTELION-A-US2017-159314

PATIENT
  Age: 30 Year
  Sex: Female
  Weight: 76.19 kg

DRUGS (4)
  1. UPTRAVI [Suspect]
     Active Substance: SELEXIPAG
     Indication: PULMONARY HYPERTENSION
     Dosage: 600 MCG, BID
     Route: 048
  2. UPTRAVI [Suspect]
     Active Substance: SELEXIPAG
     Dosage: 1200 MCG, BID
     Route: 048
  3. UPTRAVI [Suspect]
     Active Substance: SELEXIPAG
     Dosage: 1000 UNK, UNK
     Route: 048
  4. TYVASO [Concomitant]
     Active Substance: TREPROSTINIL
     Dosage: 3 BREATHS QID

REACTIONS (8)
  - Pain in jaw [Unknown]
  - Dizziness exertional [Unknown]
  - Nausea [Unknown]
  - Diarrhoea [Unknown]
  - Myalgia [Unknown]
  - Decreased appetite [Unknown]
  - Tremor [Unknown]
  - Headache [Unknown]
